FAERS Safety Report 12623304 (Version 1)
Quarter: 2016Q3

REPORT INFORMATION
  Report Type: Spontaneous
  Country: US (occurrence: US)
  Receive Date: 20160804
  Receipt Date: 20160804
  Transmission Date: 20161109
  Serious: Yes (Other)
  Sender: FDA-Public Use
  Company Number: US-SA-2016SA137726

PATIENT
  Age: 59 Year
  Sex: Male

DRUGS (5)
  1. SOLOSTAR [Concomitant]
     Active Substance: DEVICE
     Dates: start: 2007
  2. HUMULIN NOS [Concomitant]
     Active Substance: INSULIN HUMAN
  3. HUMULIN NOS [Concomitant]
     Active Substance: INSULIN HUMAN
  4. LANTUS SOLOSTAR [Suspect]
     Active Substance: INSULIN GLARGINE
     Indication: TYPE 1 DIABETES MELLITUS
     Dosage: 18-22UNITS
     Route: 065
     Dates: start: 2007
  5. ALBUTEROL. [Concomitant]
     Active Substance: ALBUTEROL

REACTIONS (3)
  - Visual impairment [Unknown]
  - Gastric disorder [Unknown]
  - Aneurysm [Unknown]
